FAERS Safety Report 7809160-3 (Version None)
Quarter: 2011Q4

REPORT INFORMATION
  Report Type: 
  Country: None (occurrence: None)
  Receive Date: 20111012
  Receipt Date: 20111006
  Transmission Date: 20120403
  Serious: Yes (Other)
  Sender: FDA-Public Use
  Company Number: US-TEVA-304269USA

PATIENT
  Sex: Female

DRUGS (1)
  1. CLARAVIS [Suspect]
     Dosage: 30 MILLIGRAM;
     Dates: start: 20110426, end: 20110916

REACTIONS (1)
  - UNINTENDED PREGNANCY [None]
